FAERS Safety Report 6585548-6 (Version None)
Quarter: 2010Q1

REPORT INFORMATION
  Report Type: 
  Country: None (occurrence: None)
  Receive Date: 20100217
  Receipt Date: 20100204
  Transmission Date: 20100710
  Serious: No
  Sender: FDA-Public Use
  Company Number: US-B.I. PHARMACEUTICALS,INC./RIDGEFIELD-2010-BP-01456BP

PATIENT
  Sex: Female

DRUGS (2)
  1. COMBIVENT [Suspect]
     Dates: end: 20091001
  2. METOPROLOL TARTRATE [Concomitant]
     Indication: ARRHYTHMIA

REACTIONS (1)
  - ARRHYTHMIA [None]
